FAERS Safety Report 8047096-6 (Version None)
Quarter: 2012Q1

REPORT INFORMATION
  Report Type: 
  Country: None (occurrence: None)
  Receive Date: 20120116
  Receipt Date: 20120104
  Transmission Date: 20120608
  Serious: Yes (Hospitalization)
  Sender: FDA-Public Use
  Company Number: KR-BRISTOL-MYERS SQUIBB COMPANY-16346561

PATIENT
  Age: 72 Year
  Sex: Male
  Weight: 62 kg

DRUGS (11)
  1. ATORVASTATIN [Concomitant]
     Indication: HYPERLIPIDAEMIA
     Dates: start: 20070101
  2. VOGLIBOSE [Concomitant]
     Indication: DIABETES MELLITUS
     Dates: start: 20070101
  3. SILODOSIN [Concomitant]
     Indication: DYSURIA
     Dates: start: 20100721
  4. DUTASTERIDE [Concomitant]
     Indication: DYSURIA
     Dates: start: 20110307
  5. METFORMIN HCL [Suspect]
     Indication: DIABETES MELLITUS
     Dosage: INTERRUPATED ON 8DEC11.
     Route: 048
     Dates: start: 20101026
  6. CARVEDILOL [Suspect]
     Indication: HYPERTENSION
     Dosage: INTERRUPTED ON 08DEC2011
     Route: 048
     Dates: start: 20070101
  7. ACECLOFENAC [Concomitant]
     Indication: BACK PAIN
     Dates: start: 20111207, end: 20111209
  8. TIZANIDINE HCL [Concomitant]
     Indication: BACK PAIN
     Dates: start: 20111207, end: 20111208
  9. LIMAPROST [Concomitant]
     Indication: BACK PAIN
     Dates: start: 20111207, end: 20111208
  10. ALMAGATE [Concomitant]
     Indication: BACK PAIN
     Dates: start: 20111207, end: 20111208
  11. GLIMEPIRIDE [Suspect]
     Indication: DIABETES MELLITUS
     Dosage: INTERRUPATED ON 8DEC11
     Route: 048
     Dates: start: 20070101

REACTIONS (2)
  - HYPERKALAEMIA [None]
  - BLOOD CREATININE INCREASED [None]
